FAERS Safety Report 6437203-0 (Version None)
Quarter: 2009Q4

REPORT INFORMATION
  Report Type: 
  Country: None (occurrence: None)
  Receive Date: 20091112
  Receipt Date: 20090805
  Transmission Date: 20100525
  Serious: No
  Sender: FDA-Public Use
  Company Number: A0800721A

PATIENT
  Age: 53 Year
  Sex: Female

DRUGS (9)
  1. TREXIMET [Suspect]
     Indication: MIGRAINE
     Dosage: 1TAB AS REQUIRED
     Route: 048
     Dates: start: 20080101
  2. SERIPHOS [Concomitant]
     Indication: ADRENAL DISORDER
  3. VITAMIN D [Concomitant]
  4. CALCIUM/MAGNESIUM [Concomitant]
  5. UNKNOWN MEDICATION [Concomitant]
  6. UNKNOWN MEDICATION [Concomitant]
  7. PROMETRIUM [Concomitant]
  8. BI-EST [Concomitant]
  9. TESTOSTERONE [Concomitant]

REACTIONS (2)
  - DRUG INEFFECTIVE [None]
  - HEADACHE [None]
